FAERS Safety Report 9496172 (Version 1)
Quarter: 2013Q3

REPORT INFORMATION
  Report Type: Spontaneous
  Country: US (occurrence: US)
  Receive Date: 20130904
  Receipt Date: 20130904
  Transmission Date: 20140515
  Serious: Yes (Hospitalization)
  Sender: FDA-Public Use
  Company Number: US-SHIRE-ALL1-2013-05762

PATIENT
  Age: 12 Year
  Sex: Male
  Weight: 69.84 kg

DRUGS (14)
  1. VYVANSE [Suspect]
     Indication: AFFECTIVE DISORDER
     Dosage: 40 MG, 1X/DAY:QD (40 MG TAKEN EVERY MORNING)
     Route: 048
     Dates: start: 20130321, end: 20130617
  2. VYVANSE [Suspect]
     Indication: AFFECTIVE DISORDER
     Dosage: 60 MG, 1X/DAY:QD (40 MG IN THE MORNING AND 20 MG AT NOON)
     Dates: start: 201306
  3. VYVANSE [Suspect]
     Indication: ATTENTION DEFICIT/HYPERACTIVITY DISORDER
  4. VYVANSE [Suspect]
     Indication: ATTENTION DEFICIT/HYPERACTIVITY DISORDER
  5. DESYREL [Suspect]
     Indication: AFFECTIVE DISORDER
     Dosage: 25 MG, 1X/DAY:QD (25 MG NIGHTLY)
     Route: 048
     Dates: start: 20130108, end: 20130617
  6. DESYREL [Suspect]
     Dosage: 12.5 MG, 1X/DAY:QD (12.5 MG NIGHTLY)
     Route: 048
     Dates: start: 20130617
  7. MENINGOCOCCAL VACCINE [Suspect]
     Indication: PROPHYLAXIS
     Dosage: UNK UNK, UNKNOWN
     Route: 065
     Dates: start: 20130409, end: 20130409
  8. CATAPRES /00171101/ [Suspect]
     Indication: AFFECTIVE DISORDER
     Dosage: 0.2 MG, 1X/DAY:QD (0.2 MG NIGHTLY)
     Route: 048
     Dates: start: 20120301
  9. DEPAKOTE [Suspect]
     Indication: AFFECTIVE DISORDER
     Dosage: 500 MG, 2X/DAY:BID
     Route: 048
     Dates: start: 20130301, end: 20130617
  10. DEPAKOTE [Suspect]
     Dosage: 250 MG, 3X/DAY:TID
     Route: 048
     Dates: start: 20130621
  11. PROZAC [Suspect]
     Indication: AFFECTIVE DISORDER
     Dosage: 10 MG, 1X/DAY:QD
     Route: 048
     Dates: start: 20121108
  12. THORAZINE [Suspect]
     Indication: AFFECTIVE DISORDER
     Dosage: 20 MG, 3X/DAY:TID
     Route: 048
     Dates: start: 20130326
  13. THORAZINE [Suspect]
     Indication: AGITATION
     Dosage: 25 MG, 3X/DAY:TID
     Route: 048
     Dates: start: 20130617
  14. THORAZINE [Suspect]
     Indication: AGGRESSION

REACTIONS (4)
  - Affective disorder [Recovered/Resolved]
  - Aggression [Recovered/Resolved]
  - Treatment noncompliance [Recovered/Resolved]
  - Drug prescribing error [Not Recovered/Not Resolved]
